FAERS Safety Report 16411373 (Version 2)
Quarter: 2019Q2

REPORT INFORMATION
  Report Type: Spontaneous
  Country: JP (occurrence: JP)
  Receive Date: 20190610
  Receipt Date: 20190611
  Transmission Date: 20190711
  Serious: No
  Sender: FDA-Public Use
  Company Number: JP-UCBSA-2017048015

PATIENT
  Age: 40 Year
  Sex: Female
  Weight: 56.5 kg

DRUGS (4)
  1. AZULFIDINE EN-TABS [Concomitant]
     Active Substance: SULFASALAZINE
     Indication: RHEUMATOID ARTHRITIS
     Dosage: 500 MILLIGRAM, EVERY 12 HOURS
     Dates: start: 20130825
  2. CIMZIA [Suspect]
     Active Substance: CERTOLIZUMAB PEGOL
     Dosage: 400 MILLIGRAM
     Route: 058
     Dates: start: 20170426, end: 20180103
  3. PROGRAF [Concomitant]
     Active Substance: TACROLIMUS\TACROLIMUS ANHYDROUS
     Indication: RHEUMATOID ARTHRITIS
     Dosage: 3 MILLIGRAM, ONCE DAILY (QD)
     Route: 048
     Dates: start: 20130825
  4. CIMZIA [Suspect]
     Active Substance: CERTOLIZUMAB PEGOL
     Indication: RHEUMATOID ARTHRITIS
     Dosage: 200 MILLIGRAM
     Route: 058
     Dates: end: 2017

REACTIONS (1)
  - Maternal exposure before pregnancy [Unknown]

NARRATIVE: CASE EVENT DATE: 2017
